FAERS Safety Report 9344797 (Version 2)
Quarter: 2013Q4

REPORT INFORMATION
  Report Type: Spontaneous
  Country: CA (occurrence: CA)
  Receive Date: 20130612
  Receipt Date: 20131230
  Transmission Date: 20140711
  Serious: Yes (Hospitalization)
  Sender: FDA-Public Use
  Company Number: CA-GLAXOSMITHKLINE-A1025780A

PATIENT
  Age: 57 Year
  Sex: Female
  Weight: 92.3 kg

DRUGS (13)
  1. ADVAIR [Suspect]
     Indication: ASTHMA
     Dosage: 1PUFF TWICE PER DAY
     Route: 055
     Dates: start: 2006
  2. INSULIN [Concomitant]
  3. METFORMIN [Concomitant]
     Dosage: 2TAB TWICE PER DAY
  4. ENTROPHEN [Concomitant]
     Dosage: 325MG PER DAY
  5. SPIRONOLACTONE [Concomitant]
     Dosage: 25MG PER DAY
  6. ROSUVASTATIN [Concomitant]
     Dosage: 10MG PER DAY
  7. DIAMICRON [Concomitant]
     Dosage: 80MG PER DAY
  8. LOSARTAN [Concomitant]
     Dosage: 2TAB PER DAY
  9. CLONIDINE [Concomitant]
     Dosage: .1MG TWICE PER DAY
  10. HYDROCHLOROTHIAZIDE [Concomitant]
     Dosage: 25MG PER DAY
  11. ATENOLOL [Concomitant]
     Dosage: 1.5TAB PER DAY
  12. ONGLYZA [Concomitant]
     Dosage: 5MG PER DAY
  13. VENTOLIN [Concomitant]

REACTIONS (8)
  - Cerebrovascular accident [Recovered/Resolved with Sequelae]
  - Speech disorder [Recovered/Resolved with Sequelae]
  - Treatment noncompliance [Unknown]
  - Rehabilitation therapy [Unknown]
  - Dyspnoea [Unknown]
  - Breath sounds abnormal [Unknown]
  - Cough [Not Recovered/Not Resolved]
  - Wheezing [Recovered/Resolved]
